FAERS Safety Report 9526972 (Version 2)
Quarter: 2013Q3

REPORT INFORMATION
  Report Type: Spontaneous
  Country: US (occurrence: US)
  Receive Date: 20130916
  Receipt Date: 20130925
  Transmission Date: 20140515
  Serious: Yes (Hospitalization)
  Sender: FDA-Public Use
  Company Number: US-GILEAD-2013-0083447

PATIENT
  Age: 61 Year
  Sex: Female

DRUGS (3)
  1. LETAIRIS [Suspect]
     Indication: PRODUCT USED FOR UNKNOWN INDICATION
     Dosage: 5 MG, QD
     Dates: start: 20120412
  2. REMODULIN [Concomitant]
     Indication: PRODUCT USED FOR UNKNOWN INDICATION
  3. ADCIRCA [Concomitant]
     Indication: PRODUCT USED FOR UNKNOWN INDICATION

REACTIONS (3)
  - Haemoptysis [Unknown]
  - Flank pain [Unknown]
  - Dyspnoea [Unknown]
